FAERS Safety Report 16024412 (Version 1)
Quarter: 2019Q1

REPORT INFORMATION
  Report Type: Spontaneous
  Country: DK (occurrence: DK)
  Receive Date: 20190301
  Receipt Date: 20190301
  Transmission Date: 20190418
  Serious: Yes (Hospitalization)
  Sender: FDA-Public Use
  Company Number: DK-ASTRAZENECA-2019SE30978

PATIENT
  Sex: Female

DRUGS (8)
  1. FASLODEX [Suspect]
     Active Substance: FULVESTRANT
     Indication: BREAST CANCER
     Dosage: STYRKE: 250 MG/5 ML, 500 MG, EVERY FOUR WEEKS
     Route: 030
     Dates: start: 201705, end: 20180629
  2. PARACETAMOL [Concomitant]
     Active Substance: ACETAMINOPHEN
     Indication: PAIN
     Dosage: STYRKE: 500 MG. DOSIS: 2 TABLETTER VED BEHOV, H???JST 4 GANGE DAGLIG
     Route: 048
     Dates: start: 20180629
  3. FULVESTRANT. [Suspect]
     Active Substance: FULVESTRANT
     Indication: BREAST CANCER
     Dosage: NON AZ PRODUCT - STYRKE: 250 MG 500 MG, EVERY FOUR WEEKS
     Route: 030
     Dates: start: 20180727, end: 20190211
  4. TRAMADOL. [Concomitant]
     Active Substance: TRAMADOL
     Indication: PAIN
     Dosage: STYRKE: 50 MG. DOSIS: 1 TABLET EFTER BEHOV, H???JST 3 GANGE DAGLIG
     Route: 048
     Dates: start: 20190122
  5. IBUPROFEN. [Concomitant]
     Active Substance: IBUPROFEN
     Indication: PAIN
     Dosage: STYRKE: 400 MG
     Route: 048
     Dates: start: 20190122
  6. IBRANCE [Suspect]
     Active Substance: PALBOCICLIB
     Indication: BREAST CANCER
     Dosage: DOSES: 125 MG DAILY. STYRKE: 125 MG
     Route: 048
     Dates: start: 201705, end: 20190211
  7. CALCIUM [Concomitant]
     Active Substance: CALCIUM
     Indication: MINERAL SUPPLEMENTATION
     Dosage: STYRKE: 400 MG CALCIUM + 19 ???G D-VITAMIN
     Route: 048
     Dates: start: 20170426
  8. PIVMECILLINAM [Concomitant]
     Active Substance: AMDINOCILLIN PIVOXIL
     Indication: CYSTITIS
     Dosage: STYRKE: 400 MG
     Route: 048
     Dates: start: 20190122

REACTIONS (12)
  - Blood lactate dehydrogenase increased [Recovering/Resolving]
  - Gait disturbance [Unknown]
  - Aortic thrombosis [Recovering/Resolving]
  - Coordination abnormal [Unknown]
  - Skin discolouration [Unknown]
  - Aspartate aminotransferase increased [Recovering/Resolving]
  - Mesenteric artery thrombosis [Recovering/Resolving]
  - Blood creatinine increased [Recovered/Resolved]
  - Muscular weakness [Unknown]
  - Peripheral artery thrombosis [Recovering/Resolving]
  - Glomerular filtration rate decreased [Recovered/Resolved]
  - Pain in extremity [Not Recovered/Not Resolved]

NARRATIVE: CASE EVENT DATE: 201901
